FAERS Safety Report 14898047 (Version 2)
Quarter: 2018Q2

REPORT INFORMATION
  Report Type: Spontaneous
  Country: US (occurrence: US)
  Receive Date: 20180515
  Receipt Date: 20180517
  Transmission Date: 20180711
  Serious: No
  Sender: FDA-Public Use
  Company Number: US-SA-2017SA263609

PATIENT
  Age: 57 Year
  Sex: Male

DRUGS (4)
  1. SOLOSTAR [Suspect]
     Active Substance: DEVICE
     Indication: TYPE 2 DIABETES MELLITUS
     Dates: start: 20171212
  2. TOUJEO [Suspect]
     Active Substance: INSULIN GLARGINE
     Indication: TYPE 2 DIABETES MELLITUS
     Dosage: DOSE:50 UNIT(S)
     Route: 051
     Dates: start: 20171212
  3. LANTUS SOLOSTAR [Concomitant]
     Active Substance: INSULIN GLARGINE
     Route: 065
  4. SOLOSTAR [Concomitant]
     Active Substance: DEVICE
     Route: 065

REACTIONS (2)
  - Drug ineffective [Unknown]
  - Blood glucose abnormal [Unknown]
